FAERS Safety Report 13231143 (Version 2)
Quarter: 2017Q1

REPORT INFORMATION
  Report Type: Spontaneous
  Country: GB (occurrence: GB)
  Receive Date: 20170214
  Receipt Date: 20170301
  Transmission Date: 20170428
  Serious: Yes (Disabling, Other)
  Sender: FDA-Public Use
  Company Number: GB-009507513-1702GBR004301

PATIENT
  Age: 30 Year
  Sex: Female
  Weight: 76.2 kg

DRUGS (4)
  1. MONTELUKAST SODIUM. [Concomitant]
     Active Substance: MONTELUKAST SODIUM
  2. MOMETASONE FUROATE. [Suspect]
     Active Substance: MOMETASONE FUROATE
     Indication: RHINITIS ALLERGIC
     Dosage: UNK
     Route: 045
  3. FLUTIFORM [Concomitant]
     Active Substance: FLUTICASONE PROPIONATE\FORMOTEROL FUMARATE
  4. LORATADINE. [Concomitant]
     Active Substance: LORATADINE

REACTIONS (3)
  - Labyrinthitis [Unknown]
  - Dizziness [Unknown]
  - Malaise [Unknown]
